FAERS Safety Report 17172575 (Version 1)
Quarter: 2019Q4

REPORT INFORMATION
  Report Type: Report from Study
  Country: GB (occurrence: GB)
  Receive Date: 20191218
  Receipt Date: 20191218
  Transmission Date: 20200122
  Serious: Yes (Other)
  Sender: FDA-Public Use
  Company Number: GB-ETHYPHARM-201902730

PATIENT
  Sex: Male

DRUGS (1)
  1. ESPRANOR [Suspect]
     Active Substance: BUPRENORPHINE HYDROCHLORIDE
     Indication: DRUG DEPENDENCE
     Dosage: STARTED WITH 8MG THEN 12MG AND NOW 14 MG A DAY
     Route: 065
     Dates: start: 201911

REACTIONS (8)
  - Somnolence [Not Recovered/Not Resolved]
  - Product taste abnormal [Not Recovered/Not Resolved]
  - Tremor [Unknown]
  - Loss of consciousness [Not Recovered/Not Resolved]
  - Visual impairment [Not Recovered/Not Resolved]
  - Lethargy [Not Recovered/Not Resolved]
  - Derealisation [Unknown]
  - Hot flush [Not Recovered/Not Resolved]
